FAERS Safety Report 14228494 (Version 1)
Quarter: 2017Q4

REPORT INFORMATION
  Report Type: Spontaneous
  Country: US (occurrence: None)
  Receive Date: 20171124
  Receipt Date: 20171124
  Transmission Date: 20180321
  Serious: No
  Sender: FDA-Public Use
  Company Number: None

PATIENT
  Age: 26 Month
  Sex: Female

DRUGS (1)
  1. VIGABATRIN 500MG PAR PHARMACEUTICAL (OPERATING COMPANY OF ENDO INTERNATIONAL PLC) [Suspect]
     Active Substance: VIGABATRIN
     Indication: MUSCLE SPASMS
     Dosage: 2 PKTS IN 20 ML AND GIV E 16 ML, TWICE DAILY, BY MOUTH
     Route: 048
     Dates: start: 20170201

REACTIONS (2)
  - Hair texture abnormal [None]
  - Trichorrhexis [None]

NARRATIVE: CASE EVENT DATE: 20171016
